FAERS Safety Report 10717999 (Version 1)
Quarter: 2015Q1

REPORT INFORMATION
  Report Type: Report from Study
  Country: US (occurrence: US)
  Receive Date: 20150116
  Receipt Date: 20150116
  Transmission Date: 20150721
  Serious: Yes (Death, Other)
  Sender: FDA-Public Use
  Company Number: US-ABBVIE-15K-163-1333280-00

PATIENT
  Age: 90 Year
  Sex: Male
  Weight: 81.72 kg

DRUGS (1)
  1. HUMIRA [Suspect]
     Active Substance: ADALIMUMAB
     Indication: RHEUMATOID ARTHRITIS
     Route: 065
     Dates: start: 201201, end: 201302

REACTIONS (4)
  - Fall [Fatal]
  - Traumatic renal injury [Fatal]
  - Rib fracture [Fatal]
  - Balance disorder [Fatal]

NARRATIVE: CASE EVENT DATE: 201402
